FAERS Safety Report 7905040-3 (Version None)
Quarter: 2011Q4

REPORT INFORMATION
  Report Type: 
  Country: None (occurrence: None)
  Receive Date: 20111109
  Receipt Date: 20111103
  Transmission Date: 20120403
  Serious: Yes (Other)
  Sender: FDA-Public Use
  Company Number: PHHY2011FR097345

PATIENT
  Age: 47 Year
  Sex: Male

DRUGS (4)
  1. ACETAMINOPHEN [Concomitant]
     Dosage: 2 DF, QOD (WITH EACH INJECTION OF EXTAVIA)
  2. EXTAVIA [Suspect]
     Indication: MULTIPLE SCLEROSIS
     Dosage: 1 ML, QOD (EVERY 2 DAYS)
     Route: 058
     Dates: start: 20110201
  3. VESICARE [Concomitant]
     Dosage: 5 MG, UNK
     Dates: start: 20110701
  4. SILODOSIN [Concomitant]
     Dosage: 8 MG, DAILY
     Dates: start: 20110701

REACTIONS (6)
  - MALAISE [None]
  - HYPOTHERMIA [None]
  - HYPOAESTHESIA [None]
  - HEART RATE DECREASED [None]
  - FEELING HOT [None]
  - HYPERHIDROSIS [None]
